FAERS Safety Report 5246895-3 (Version None)
Quarter: 2007Q1

REPORT INFORMATION
  Report Type: 
  Country: None (occurrence: None)
  Receive Date: 20070226
  Receipt Date: 20070214
  Transmission Date: 20070707
  Serious: Yes (Other)
  Sender: FDA-Public Use
  Company Number: JP-PFIZER INC-2007012270

PATIENT
  Age: 76 Year
  Sex: Male

DRUGS (1)
  1. ZYVOX [Suspect]
     Route: 042

REACTIONS (1)
  - VENTRICULAR ARRHYTHMIA [None]
